FAERS Safety Report 17937003 (Version 1)
Quarter: 2020Q2

REPORT INFORMATION
  Report Type: Spontaneous
  Country: US (occurrence: US)
  Receive Date: 20200624
  Receipt Date: 20200624
  Transmission Date: 20200714
  Serious: Yes (Death, Other)
  Sender: FDA-Public Use
  Company Number: US-ENDO PHARMACEUTICALS INC-2020-004337

PATIENT
  Age: 25 Year

DRUGS (5)
  1. METOCLOPRAMIDE HYDROCHLORIDE. [Suspect]
     Active Substance: METOCLOPRAMIDE HYDROCHLORIDE
     Indication: PRODUCT USED FOR UNKNOWN INDICATION
     Dosage: UNK UNKNOWN, UNKNOWN
     Route: 048
  2. CYCLOBENZAPRINE. [Suspect]
     Active Substance: CYCLOBENZAPRINE
     Indication: PRODUCT USED FOR UNKNOWN INDICATION
     Dosage: UNK UNKNOWN, UNKNOWN
     Route: 048
  3. ECSTASY [Suspect]
     Active Substance: MIDOMAFETAMINE
     Indication: PRODUCT USED FOR UNKNOWN INDICATION
     Dosage: UNK UNKNOWN, UNKNOWN
     Route: 048
  4. LSD [Suspect]
     Active Substance: LYSERGIDE
     Indication: PRODUCT USED FOR UNKNOWN INDICATION
     Dosage: UNK UNKNOWN, UNKNOWN
     Route: 048
  5. LORTAB [Suspect]
     Active Substance: ACETAMINOPHEN\HYDROCODONE BITARTRATE
     Indication: PRODUCT USED FOR UNKNOWN INDICATION
     Dosage: UNK UNKNOWN, UNKNOWN
     Route: 048

REACTIONS (21)
  - Death [Fatal]
  - Bradycardia [Unknown]
  - Tachycardia [Unknown]
  - Hypokalaemia [Unknown]
  - Pyrexia [Unknown]
  - Nodal rhythm [Unknown]
  - Coma [Unknown]
  - Conduction disorder [Unknown]
  - Dysarthria [Unknown]
  - Tremor [Unknown]
  - Cardiac arrest [Unknown]
  - Mydriasis [Unknown]
  - Pupillary reflex impaired [Unknown]
  - Agitation [Unknown]
  - Confusional state [Unknown]
  - Pulseless electrical activity [Unknown]
  - Irritability [Unknown]
  - Hyperthermia [Unknown]
  - Ill-defined disorder [Unknown]
  - Hypotension [Unknown]
  - Acidosis [Unknown]

NARRATIVE: CASE EVENT DATE: 201106
